FAERS Safety Report 12214866 (Version 2)
Quarter: 2016Q1

REPORT INFORMATION
  Report Type: Report from Study
  Country: US (occurrence: US)
  Receive Date: 20160328
  Receipt Date: 20160330
  Transmission Date: 20160526
  Serious: Yes (Other)
  Sender: FDA-Public Use
  Company Number: US-ABBVIE-16K-163-1590016-00

PATIENT
  Age: 66 Year
  Sex: Female
  Weight: 75.36 kg

DRUGS (2)
  1. HUMIRA [Suspect]
     Active Substance: ADALIMUMAB
     Route: 058
     Dates: start: 201602
  2. HUMIRA [Suspect]
     Active Substance: ADALIMUMAB
     Indication: PSORIASIS
     Route: 058
     Dates: start: 201602, end: 201602

REACTIONS (1)
  - Breast cancer [Not Recovered/Not Resolved]

NARRATIVE: CASE EVENT DATE: 201603
